FAERS Safety Report 7376874-1 (Version None)
Quarter: 2011Q1

REPORT INFORMATION
  Report Type: 
  Country: None (occurrence: None)
  Receive Date: 20110327
  Receipt Date: 20110314
  Transmission Date: 20110831
  Serious: Yes (Death)
  Sender: FDA-Public Use
  Company Number: US-CELGENEUS-163-21880-11031733

PATIENT
  Sex: Male

DRUGS (4)
  1. CARVEDILOL [Concomitant]
     Route: 065
  2. XANAX [Concomitant]
     Route: 065
  3. REVLIMID [Suspect]
     Dosage: 25 MILLIGRAM
     Route: 048
     Dates: start: 20110302, end: 20110301
  4. LASIX [Concomitant]
     Route: 065

REACTIONS (1)
  - DEATH [None]
